FAERS Safety Report 16030986 (Version 19)
Quarter: 2022Q1

REPORT INFORMATION
  Report Type: Spontaneous
  Country: US (occurrence: US)
  Receive Date: 20190304
  Receipt Date: 20220211
  Transmission Date: 20220424
  Serious: Yes (Other)
  Sender: FDA-Public Use
  Company Number: US-PFIZER INC-2019082853

PATIENT
  Age: 73 Year
  Sex: Female
  Weight: 200 kg

DRUGS (14)
  1. PRISTIQ EXTENDED-RELEASE [Interacting]
     Active Substance: DESVENLAFAXINE SUCCINATE
     Indication: Depression
     Dosage: 100 MG, DAILY
     Route: 048
     Dates: start: 2008
  2. PRISTIQ EXTENDED-RELEASE [Interacting]
     Active Substance: DESVENLAFAXINE SUCCINATE
     Dosage: 50 MG, DAILY
     Route: 048
  3. PRISTIQ EXTENDED-RELEASE [Interacting]
     Active Substance: DESVENLAFAXINE SUCCINATE
     Dosage: 25 MG, DAILY
     Route: 048
  4. PRISTIQ EXTENDED-RELEASE [Interacting]
     Active Substance: DESVENLAFAXINE SUCCINATE
     Dosage: 75 MG, DAILY
  5. PRISTIQ EXTENDED-RELEASE [Interacting]
     Active Substance: DESVENLAFAXINE SUCCINATE
     Dosage: 100 MG, DAILY
     Route: 048
  6. PRISTIQ EXTENDED-RELEASE [Interacting]
     Active Substance: DESVENLAFAXINE SUCCINATE
     Dosage: 50 MG
  7. HUMALOG [Concomitant]
     Active Substance: INSULIN LISPRO
     Indication: Type 2 diabetes mellitus
     Dosage: UNK (2 TO 6 UNITS, PER MEAL)
     Route: 058
     Dates: start: 2014
  8. LEVEMIR [Concomitant]
     Active Substance: INSULIN DETEMIR
     Indication: Type 2 diabetes mellitus
     Dosage: UNK, 1X/DAY (BETWEEN 28 AND 30 UNITS AT NIGHT)
     Route: 058
     Dates: start: 2008
  9. VITAMIN D3 [Concomitant]
     Active Substance: CHOLECALCIFEROL
     Dosage: UNK (TAKE AT SAME TIME AS PRISTIQ + A.M)
  10. LEVOTHYROXINE SODIUM/LIOTHYRONINE [Concomitant]
     Dosage: UNK, 1X/DAY (IN A.M.)
  11. VITAMIN B12 [Concomitant]
     Active Substance: CYANOCOBALAMIN
     Dosage: UNK, 1X/DAY (IN A.M.)
  12. GARDEN OF LIFE PROBIOTICS [Concomitant]
     Dosage: UNK, 1X/DAY (BED TIME, NOT USUALLY SAME TIME AS PRISTIQ)
  13. OXYMETAZOLINE HYDROCHLORIDE [Concomitant]
     Active Substance: OXYMETAZOLINE HYDROCHLORIDE
     Dosage: UNK, AS NEEDED (NOT USUALLY AT SAME TIME AS PRISTIQ)
  14. INSULIN NOS [Concomitant]
     Active Substance: INSULIN NOS
     Dosage: UNK, 1X/DAY [AT NIGHT]

REACTIONS (26)
  - Autoimmune disorder [Unknown]
  - Ankle fracture [Recovered/Resolved]
  - Food interaction [Recovering/Resolving]
  - Headache [Recovering/Resolving]
  - Hyperhidrosis [Not Recovered/Not Resolved]
  - Abnormal dreams [Recovered/Resolved]
  - Feeling abnormal [Recovering/Resolving]
  - Crying [Recovered/Resolved]
  - Somnolence [Not Recovered/Not Resolved]
  - Fall [Unknown]
  - Withdrawal syndrome [Unknown]
  - Psychomotor hyperactivity [Unknown]
  - Memory impairment [Unknown]
  - Illness [Unknown]
  - Frustration tolerance decreased [Unknown]
  - Anxiety [Unknown]
  - Agitation [Unknown]
  - Arthropod bite [Unknown]
  - Food allergy [Unknown]
  - Diarrhoea [Unknown]
  - Nausea [Unknown]
  - Vomiting [Unknown]
  - Retching [Unknown]
  - Gastritis [Unknown]
  - Product dispensing error [Unknown]
  - Product dose omission in error [Unknown]

NARRATIVE: CASE EVENT DATE: 20190101
